FAERS Safety Report 9093779 (Version 1)
Quarter: 2013Q1

REPORT INFORMATION
  Report Type: Report from Study
  Country: US (occurrence: US)
  Receive Date: 20130131
  Receipt Date: 20130131
  Transmission Date: 20140127
  Serious: No
  Sender: FDA-Public Use
  Company Number: US-ABBOTT-12P-163-1004832-00

PATIENT
  Age: 83 Year
  Sex: Male

DRUGS (10)
  1. HUMIRA [Suspect]
     Indication: CROHN^S DISEASE
     Route: 058
     Dates: start: 20121102, end: 20121102
  2. PREDNISONE [Suspect]
     Indication: CROHN^S DISEASE
     Dosage: CURRENTLY STEPPING DOWN PREDNISONE
     Route: 048
  3. TPN [Concomitant]
     Indication: MALNUTRITION
     Dosage: NIGHTLY
  4. TPN (NON-ABBOTT) [Concomitant]
     Indication: CROHN^S DISEASE
  5. AZITHROMYCIN [Concomitant]
     Indication: TUBERCULIN TEST POSITIVE
     Dates: start: 201202
  6. AZITHROMYCIN [Concomitant]
     Indication: LUNG INFECTION
  7. ISONIAZID [Concomitant]
     Indication: TUBERCULIN TEST POSITIVE
     Dates: start: 201202
  8. ISONIAZID [Concomitant]
     Indication: LUNG INFECTION
  9. UNKNOWN ANTIBIOTIC (NON-ABBOTT) [Concomitant]
     Indication: TUBERCULIN TEST POSITIVE
     Dates: start: 201202
  10. UNKNOWN ANTIBIOTIC (NON-ABBOTT) [Concomitant]
     Indication: LUNG INFECTION

REACTIONS (2)
  - Blood glucose decreased [Recovered/Resolved]
  - Lethargy [Recovered/Resolved]
